FAERS Safety Report 7298382-9 (Version None)
Quarter: 2011Q1

REPORT INFORMATION
  Report Type: 
  Country: None (occurrence: None)
  Receive Date: 20110217
  Receipt Date: 20110208
  Transmission Date: 20110831
  Serious: Yes (Other)
  Sender: FDA-Public Use
  Company Number: CA-US-EMD SERONO, INC.-7025315

PATIENT
  Sex: Female

DRUGS (22)
  1. NEXIUM [Concomitant]
  2. UROMOL HC [Concomitant]
     Indication: DRY SKIN
  3. TRIAZADONE (TRAZODONE) [Concomitant]
  4. NASONEX [Concomitant]
     Route: 045
  5. SYMBICORT [Concomitant]
     Dosage: 2 PUFFS
  6. TEMAZETAM [Concomitant]
  7. ASPIRIN [Concomitant]
     Dosage: LOW DOSE
  8. ELECOMBE [Concomitant]
     Indication: EAR DISORDER
  9. REBIF [Suspect]
  10. LORAZEPAM [Concomitant]
  11. SPIRONOLACTONE [Concomitant]
  12. TIVEA-A [Concomitant]
     Indication: PRECANCEROUS SKIN LESION
  13. ATROVENT [Concomitant]
     Dosage: 2-4 PUFFS
  14. OMEGA 3 WILD SALMON (OMEGA 3) [Concomitant]
  15. GLUCOSAMINE SULFATE [Concomitant]
  16. REBIF [Suspect]
     Indication: RELAPSING-REMITTING MULTIPLE SCLEROSIS
     Dates: start: 20101021
  17. IBUPROFEN [Concomitant]
     Indication: PREMEDICATION
  18. HYDROCHLOROTHIAZIDE [Concomitant]
  19. VIT B COMPLEX [Concomitant]
  20. MULTI-VITAMINS [Concomitant]
  21. VIT D (VITAMIN D) [Concomitant]
  22. VIT C WITH ROSE HIPS (VITAMIN C WITH ROSE HIPS) [Concomitant]

REACTIONS (14)
  - MUSCLE SPASMS [None]
  - ANXIETY [None]
  - INJECTION SITE ERYTHEMA [None]
  - NECK PAIN [None]
  - GLUCOSE TOLERANCE IMPAIRED [None]
  - WEIGHT DECREASED [None]
  - DEPRESSION [None]
  - FATIGUE [None]
  - MUSCULAR WEAKNESS [None]
  - NAUSEA [None]
  - BACK PAIN [None]
  - HEPATIC ENZYME INCREASED [None]
  - GASTRIC DISORDER [None]
  - INFLUENZA LIKE ILLNESS [None]
